FAERS Safety Report 4435467-6 (Version None)
Quarter: 2004Q3

REPORT INFORMATION
  Report Type: 
  Country: None (occurrence: None)
  Receive Date: 20040726
  Receipt Date: 20040527
  Transmission Date: 20050211
  Serious: No
  Sender: FDA-Public Use
  Company Number: USA040568030

PATIENT
  Age: 76 Year
  Sex: Female
  Weight: 73 kg

DRUGS (7)
  1. FORTEO [Suspect]
     Indication: OSTEOPOROSIS
     Dosage: 20 UG/1 DAY
     Dates: start: 20040506
  2. ASPIRIN [Concomitant]
  3. MICARDIS [Concomitant]
  4. HYDROCHLOROTHIAZIDE [Concomitant]
  5. PROPOXYPHENE NAPSYLATE W/ ACETAMINOPHEN [Concomitant]
  6. PREMARIN [Concomitant]
  7. PROVERA [Concomitant]

REACTIONS (1)
  - ABDOMINAL PAIN UPPER [None]
